FAERS Safety Report 8688318 (Version 3)
Quarter: 2013Q4

REPORT INFORMATION
  Report Type: Spontaneous
  Country: US (occurrence: US)
  Receive Date: 20120727
  Receipt Date: 20131101
  Transmission Date: 20140711
  Serious: No
  Sender: FDA-Public Use
  Company Number: US-009507513-2012SP036228

PATIENT
  Age: 38 Year
  Sex: Female
  Weight: 102.4 kg

DRUGS (3)
  1. CLARITIN-D-24 [Suspect]
     Indication: SEASONAL ALLERGY
     Dosage: 10 MG, QPM
     Route: 048
     Dates: start: 201203, end: 20120531
  2. CLARITIN-D-24 [Suspect]
     Indication: MEDICAL OBSERVATION
  3. CENTRUM CHEWABLE MULTIVITAMIN MULTIMINERAL SUPPLEMENT [Concomitant]
     Indication: PRODUCT USED FOR UNKNOWN INDICATION
     Dosage: UNK, UNKNOWN

REACTIONS (1)
  - No therapeutic response [Unknown]
